FAERS Safety Report 11749688 (Version 2)
Quarter: 2016Q1

REPORT INFORMATION
  Report Type: Spontaneous
  Country: US (occurrence: US)
  Receive Date: 20151118
  Receipt Date: 20160104
  Transmission Date: 20160525
  Serious: No
  Sender: FDA-Public Use
  Company Number: US-TEVA-608950USA

PATIENT
  Age: 2 Year
  Sex: Female

DRUGS (1)
  1. QVAR [Suspect]
     Active Substance: BECLOMETHASONE DIPROPIONATE
     Indication: PRODUCT USED FOR UNKNOWN INDICATION
     Dosage: 40 (UNITS NOT PROVIDED) 2 PUFFS TWICE A DAY
     Route: 055

REACTIONS (5)
  - Anxiety [Recovered/Resolved]
  - Restlessness [Recovered/Resolved]
  - Drug administered to patient of inappropriate age [Recovered/Resolved]
  - Sleep disorder [Unknown]
  - Aggression [Unknown]

NARRATIVE: CASE EVENT DATE: 20151016
